FAERS Safety Report 23996091 (Version 1)
Quarter: 2024Q2

REPORT INFORMATION
  Report Type: Spontaneous
  Country: US (occurrence: US)
  Receive Date: 20240620
  Receipt Date: 20240620
  Transmission Date: 20240715
  Serious: No
  Sender: FDA-Public Use
  Company Number: US-BRACCO-2023US05798

PATIENT
  Age: 64 Year
  Sex: Male

DRUGS (4)
  1. AXUMIN [Suspect]
     Active Substance: FLUCICLOVINE F-18
     Indication: Positron emission tomogram
  2. ABIRATERONE;PREDNISONE [Concomitant]
  3. DEGARELIX [Concomitant]
     Active Substance: DEGARELIX
  4. DENOSUMAB [Concomitant]
     Active Substance: DENOSUMAB

REACTIONS (1)
  - Therapeutic response unexpected [Unknown]
